FAERS Safety Report 17229005 (Version 1)
Quarter: 2020Q1

REPORT INFORMATION
  Report Type: Spontaneous
  Country: US (occurrence: US)
  Receive Date: 20200102
  Receipt Date: 20200102
  Transmission Date: 20200409
  Serious: Yes (Hospitalization)
  Sender: FDA-Public Use
  Company Number: None

PATIENT
  Age: 7 Year
  Sex: Male

DRUGS (1)
  1. SYMDEKO [Suspect]
     Active Substance: IVACAFTOR\TEZACAFTOR
     Indication: CYSTIC FIBROSIS
     Route: 048
     Dates: start: 20190701, end: 20200102

REACTIONS (4)
  - Pseudomonas infection [None]
  - Staphylococcal infection [None]
  - Cystic fibrosis [None]
  - Condition aggravated [None]

NARRATIVE: CASE EVENT DATE: 20191216
